FAERS Safety Report 6742565-0 (Version None)
Quarter: 2010Q2

REPORT INFORMATION
  Report Type: 
  Country: None (occurrence: None)
  Receive Date: 20100526
  Receipt Date: 20100518
  Transmission Date: 20101027
  Serious: Yes (Other)
  Sender: FDA-Public Use
  Company Number: US-GILEAD-2010-0027785

PATIENT
  Sex: Male
  Weight: 86.26 kg

DRUGS (2)
  1. TRUVADA [Suspect]
     Indication: HIV INFECTION
     Dates: start: 20060301
  2. KALETRA [Concomitant]
     Indication: HIV INFECTION

REACTIONS (2)
  - HEADACHE [None]
  - POLYCYTHAEMIA [None]
